FAERS Safety Report 19472998 (Version 1)
Quarter: 2021Q2

REPORT INFORMATION
  Report Type: Spontaneous
  Country: BG (occurrence: BG)
  Receive Date: 20210629
  Receipt Date: 20210629
  Transmission Date: 20210717
  Serious: Yes (Other)
  Sender: FDA-Public Use
  Company Number: BG-MYLANLABS-2021M1037519

PATIENT
  Age: 61 Year
  Sex: Female

DRUGS (4)
  1. TENOFOVIR DISOPROXIL MYLAN 245 MG [Suspect]
     Active Substance: TENOFOVIR DISOPROXIL
     Indication: CHRONIC HEPATITIS B
     Dosage: 245 MILLIGRAM, QD (ONE TABLET PER DAY)
     Route: 048
     Dates: start: 20200601, end: 20210201
  2. PANRAZOL [Concomitant]
     Active Substance: PANTOPRAZOLE SODIUM
     Indication: GASTRITIS
     Dosage: 1 DOSAGE FORM, QD (1 TABLET DAILY)
     Route: 048
  3. RAMIPRIL. [Concomitant]
     Active Substance: RAMIPRIL
     Dosage: 1/2 ? 1 TABLET IF AH GOES UP (DRUG ADMIN DURATION: ^FOR YEARS^ AS REPORTED BY PRIMARY SOURCE)
     Route: 048
  4. PANRAZOL [Concomitant]
     Active Substance: PANTOPRAZOLE SODIUM
     Indication: GASTROOESOPHAGEAL REFLUX DISEASE

REACTIONS (3)
  - Palpitations [Recovered/Resolved]
  - Syncope [Recovered/Resolved]
  - Nausea [Recovered/Resolved]

NARRATIVE: CASE EVENT DATE: 20210101
